FAERS Safety Report 16255859 (Version 3)
Quarter: 2019Q2

REPORT INFORMATION
  Report Type: Spontaneous
  Country: US (occurrence: US)
  Receive Date: 20190430
  Receipt Date: 20190528
  Transmission Date: 20190711
  Serious: No
  Sender: FDA-Public Use
  Company Number: US-PFIZER INC-2017429986

PATIENT
  Age: 82 Year
  Sex: Female
  Weight: 59 kg

DRUGS (3)
  1. LYRICA [Suspect]
     Active Substance: PREGABALIN
     Indication: BACK PAIN
     Dosage: 225 MG, 1X/DAY (3 PILLS BY MOUTH QHS/ 3 CAPSULE BY MOUTH ONCE AT BEDTIME)
     Route: 048
  2. LYRICA [Suspect]
     Active Substance: PREGABALIN
     Indication: SPINAL STENOSIS
  3. LYRICA [Suspect]
     Active Substance: PREGABALIN
     Indication: STENOSIS

REACTIONS (5)
  - Hypoacusis [Unknown]
  - Headache [Unknown]
  - Pain [Unknown]
  - Nausea [Unknown]
  - Influenza like illness [Unknown]
